FAERS Safety Report 26094552 (Version 1)
Quarter: 2025Q4

REPORT INFORMATION
  Report Type: Report from Study
  Country: US (occurrence: US)
  Receive Date: 20251126
  Receipt Date: 20251126
  Transmission Date: 20260118
  Serious: No
  Sender: ABBVIE
  Company Number: US-ABBVIE-6542673

PATIENT
  Age: 56 Year
  Sex: Male
  Weight: 77.11 kg

DRUGS (4)
  1. VRAYLAR [Suspect]
     Active Substance: CARIPRAZINE
     Indication: Bipolar disorder
     Dosage: 1.5 MILLIGRAM
     Route: 048
     Dates: start: 20250920, end: 20250922
  2. XANAX [Concomitant]
     Active Substance: ALPRAZOLAM
     Indication: Anxiety
     Dates: start: 20250927
  3. HYDROCODONE [Concomitant]
     Active Substance: HYDROCODONE
     Indication: Arthritis
  4. TRAMADOL [Suspect]
     Active Substance: TRAMADOL
     Indication: Product used for unknown indication

REACTIONS (20)
  - Headache [Recovering/Resolving]
  - Anaemia [Recovered/Resolved]
  - Panic attack [Not Recovered/Not Resolved]
  - Mobility decreased [Recovered/Resolved]
  - Speech disorder [Not Recovered/Not Resolved]
  - Vision blurred [Recovering/Resolving]
  - Amnesia [Recovering/Resolving]
  - Panic attack [Recovered/Resolved]
  - Presyncope [Unknown]
  - Impaired driving ability [Unknown]
  - Visual field defect [Recovered/Resolved]
  - Feeling abnormal [Unknown]
  - Dysgraphia [Unknown]
  - Illness [Recovered/Resolved]
  - Personality change [Unknown]
  - Crohn^s disease [Unknown]
  - Confusional state [Unknown]
  - Weight decreased [Recovering/Resolving]
  - Eye disorder [Unknown]
  - Visual field defect [Unknown]

NARRATIVE: CASE EVENT DATE: 20250901
